FAERS Safety Report 22958021 (Version 2)
Quarter: 2023Q4

REPORT INFORMATION
  Report Type: Spontaneous
  Country: US (occurrence: US)
  Receive Date: 20230919
  Receipt Date: 20231220
  Transmission Date: 20240110
  Serious: No
  Sender: FDA-Public Use
  Company Number: US-PROVENTION BIO, INC.-US-PRAG-23-00044

PATIENT
  Age: 8 Year
  Sex: Female
  Weight: 28.9 kg

DRUGS (6)
  1. TZIELD [Suspect]
     Active Substance: TEPLIZUMAB-MZWV
     Indication: Diabetes prophylaxis
     Dosage: 65.51 MICROGRAM, SINGLE
     Route: 042
     Dates: start: 20230531, end: 20230531
  2. TZIELD [Suspect]
     Active Substance: TEPLIZUMAB-MZWV
     Dosage: 126 MICROGRAM, SINGLE
     Route: 042
     Dates: start: 20230601, end: 20230601
  3. TZIELD [Suspect]
     Active Substance: TEPLIZUMAB-MZWV
     Dosage: 252 MICROGRAM, SINGLE
     Route: 042
     Dates: start: 20230602, end: 20230602
  4. TZIELD [Suspect]
     Active Substance: TEPLIZUMAB-MZWV
     Dosage: 504 MICROGRAM, SINGLE
     Route: 042
     Dates: start: 20230605, end: 20230605
  5. TZIELD [Suspect]
     Active Substance: TEPLIZUMAB-MZWV
     Dosage: 1038 MICROGRAM, SINGLE
     Route: 042
     Dates: start: 20230606, end: 20230608
  6. TZIELD [Suspect]
     Active Substance: TEPLIZUMAB-MZWV
     Dosage: 1038 MICROGRAM, SINGLE
     Route: 042
     Dates: start: 20230610, end: 20230610

REACTIONS (4)
  - Product dose omission issue [Recovered/Resolved]
  - Vein rupture [Recovered/Resolved]
  - Fear of injection [Recovered/Resolved]
  - Therapy cessation [Unknown]

NARRATIVE: CASE EVENT DATE: 20230603
